FAERS Safety Report 8505171-3 (Version None)
Quarter: 2012Q3

REPORT INFORMATION
  Report Type: 
  Country: None (occurrence: None)
  Receive Date: 20120712
  Receipt Date: 20120705
  Transmission Date: 20120928
  Serious: Yes (Other)
  Sender: FDA-Public Use
  Company Number: US-JNJFOC-20120703707

PATIENT
  Age: 83 Year
  Sex: Female

DRUGS (4)
  1. KETOCONAZOLE [Suspect]
     Indication: CUSHING'S SYNDROME
     Route: 048
  2. KETOCONAZOLE [Suspect]
     Dosage: FOR 2 DAYS
     Route: 048
  3. POTASSIUM CHLORIDE [Suspect]
     Indication: HYPOKALAEMIA
     Route: 048
  4. VERAPAMIL [Interacting]
     Indication: HYPERTENSION
     Route: 065

REACTIONS (4)
  - OFF LABEL USE [None]
  - MENTAL STATUS CHANGES [None]
  - DRUG INTERACTION [None]
  - ATRIOVENTRICULAR BLOCK [None]
